FAERS Safety Report 9737457 (Version 3)
Quarter: 2014Q1

REPORT INFORMATION
  Report Type: Spontaneous
  Country: JP (occurrence: JP)
  Receive Date: 20131206
  Receipt Date: 20140103
  Transmission Date: 20141002
  Serious: No
  Sender: FDA-Public Use
  Company Number: JP-SUCAMPO PHARMA AMERICAS, INC-SPI201300834

PATIENT
  Age: 81 Year
  Sex: Male

DRUGS (9)
  1. AMITIZA [Suspect]
     Indication: CONSTIPATION
     Dosage: 24 MCG, QD
     Route: 048
     Dates: start: 20131123, end: 20131128
  2. BAYASPIRIN [Concomitant]
     Dosage: UNK, QD
     Route: 048
  3. ALFAROL [Concomitant]
     Dosage: UNK, QD
     Route: 048
  4. NORVASC [Concomitant]
     Dosage: UNK, QD
     Route: 048
  5. AVOLVE [Concomitant]
     Dosage: UNK, QD
     Route: 048
  6. PARIET [Concomitant]
     Dosage: UNK, QD
     Route: 048
  7. SIGMART [Concomitant]
     Dosage: UNK, QD
     Route: 048
  8. CRESTOR [Concomitant]
     Dosage: UNK, QD
     Route: 048
  9. UNKNOWN [Concomitant]
     Dosage: UNK, QD
     Route: 048

REACTIONS (3)
  - Chest discomfort [Recovered/Resolved]
  - Abdominal discomfort [Recovered/Resolved]
  - Nausea [Recovered/Resolved]
